FAERS Safety Report 13690966 (Version 1)
Quarter: 2017Q2

REPORT INFORMATION
  Report Type: Not Available
  Country: US (occurrence: US)
  Receive Date: 20170626
  Receipt Date: 20170626
  Transmission Date: 20170830
  Serious: No
  Sender: FDA-Public Use
  Company Number: US-ANIPHARMA-2016-US-008255

PATIENT
  Sex: Male

DRUGS (1)
  1. OXYCODONE HYDROCHLORIDE ORAL SOLUTION [Suspect]
     Active Substance: OXYCODONE HYDROCHLORIDE
     Dosage: 8 TEASPOONFULS DAILY
     Route: 048
     Dates: start: 20161001, end: 20161004

REACTIONS (3)
  - Dizziness [Recovered/Resolved]
  - Dysgeusia [Recovered/Resolved]
  - Abdominal pain [Recovered/Resolved]

NARRATIVE: CASE EVENT DATE: 20161001
